FAERS Safety Report 6847501-4 (Version None)
Quarter: 2010Q3

REPORT INFORMATION
  Report Type: 
  Country: None (occurrence: None)
  Receive Date: 20100714
  Receipt Date: 20100702
  Transmission Date: 20110219
  Serious: Yes (Hospitalization)
  Sender: FDA-Public Use
  Company Number: DSU-2010-03136

PATIENT
  Age: 69 Year
  Sex: Male
  Weight: 69.4003 kg

DRUGS (5)
  1. AZOR [Suspect]
     Indication: HYPERTENSION
     Dosage: 5/40MG QD, PER ORAL
     Route: 048
     Dates: start: 20080101
  2. BISOPROLOL FUMARATE AND HYDROCHLOROTHIAZIDE [Suspect]
     Indication: HYPERTENSION
     Dosage: PER ORAL
     Route: 048
     Dates: start: 20100201, end: 20100201
  3. XALATAN [Concomitant]
  4. CRESTOR (ROSUVASTATIN) (ROSUVASTATIN) [Concomitant]
  5. PLAVIX (CLOPIDOGREL) (CLOPIDOGREL) [Concomitant]

REACTIONS (5)
  - ARTHRALGIA [None]
  - HYPERTENSION [None]
  - JOINT SWELLING [None]
  - PAIN IN EXTREMITY [None]
  - SYNCOPE [None]
